FAERS Safety Report 7622235-7 (Version None)
Quarter: 2011Q3

REPORT INFORMATION
  Report Type: 
  Country: None (occurrence: None)
  Receive Date: 20110720
  Receipt Date: 20110715
  Transmission Date: 20111222
  Serious: Yes (Other)
  Sender: FDA-Public Use
  Company Number: JP-BAYER-2011-061540

PATIENT
  Sex: Male

DRUGS (1)
  1. ADALAT CC [Suspect]
     Dosage: 50 DF, ONCE
     Route: 048

REACTIONS (1)
  - OVERDOSE [None]
